FAERS Safety Report 14669716 (Version 1)
Quarter: 2018Q1

REPORT INFORMATION
  Report Type: Spontaneous
  Country: US (occurrence: US)
  Receive Date: 20180322
  Receipt Date: 20180322
  Transmission Date: 20180509
  Serious: No
  Sender: FDA-Public Use
  Company Number: US-GLAXOSMITHKLINE-US2018043584

PATIENT
  Age: 74 Year
  Sex: Female

DRUGS (1)
  1. NICODERM CQ [Suspect]
     Active Substance: NICOTINE
     Indication: SMOKING CESSATION THERAPY
     Dosage: 21 MG, UNK
     Dates: start: 20180120, end: 20180216

REACTIONS (4)
  - Hypersensitivity [Unknown]
  - Application site pruritus [Unknown]
  - Application site reaction [Unknown]
  - Application site erythema [Unknown]

NARRATIVE: CASE EVENT DATE: 20180205
